FAERS Safety Report 8937977 (Version 1)
Quarter: 2012Q4

REPORT INFORMATION
  Report Type: 
  Country: CO (occurrence: CO)
  Receive Date: 20121203
  Receipt Date: 20121203
  Transmission Date: 20130627
  Serious: Yes (Hospitalization)
  Sender: FDA-Public Use
  Company Number: CO-ELI_LILLY_AND_COMPANY-CO201211007709

PATIENT
  Age: 74 Year
  Sex: Female

DRUGS (7)
  1. HUMALOG 25% LISPRO, 75% NPL [Suspect]
     Indication: TYPE 2 DIABETES MELLITUS
     Dosage: 10 IU, tid
     Dates: start: 20120814, end: 201209
  2. HUMALOG 25% LISPRO, 75% NPL [Suspect]
     Dosage: 10 IU, tid
     Dates: start: 201210
  3. HUMALOG 25% LISPRO, 75% NPL [Suspect]
     Indication: TYPE 2 DIABETES MELLITUS
     Dosage: 10 IU, tid
     Dates: start: 201209, end: 201210
  4. HUMALOG 25% LISPRO, 75% NPL [Suspect]
     Dosage: 10 IU, tid
     Dates: start: 201211
  5. METOPROLOL [Concomitant]
     Dosage: 50 mg, bid
  6. LOSARTAN [Concomitant]
     Dosage: 100 mg, bid
  7. ACETYLSALICYLIC ACID [Concomitant]
     Dosage: 100 mg, qd

REACTIONS (2)
  - Arterial occlusive disease [Recovering/Resolving]
  - Mitral valve incompetence [Recovering/Resolving]
